FAERS Safety Report 7497104-6 (Version None)
Quarter: 2011Q2

REPORT INFORMATION
  Report Type: 
  Country: None (occurrence: None)
  Receive Date: 20110523
  Receipt Date: 20110519
  Transmission Date: 20111010
  Serious: Yes (Life-Threatening)
  Sender: FDA-Public Use
  Company Number: KR-ASTRAZENECA-2011SE30081

PATIENT
  Age: 53 Year
  Sex: Female
  Weight: 46 kg

DRUGS (9)
  1. HARTMANN SOLUTION [Concomitant]
  2. OXYGEN [Concomitant]
  3. PROPOFOL [Suspect]
     Route: 042
  4. REMIFENTANIL [Concomitant]
  5. PYRIDOSTIGMINE BROMIDE [Concomitant]
  6. TS-1 [Suspect]
     Indication: GASTRIC CANCER
  7. LIDOCAINE [Concomitant]
  8. MIDAZOLAM HCL [Concomitant]
  9. GLYCOPYRROLATE [Concomitant]

REACTIONS (1)
  - PULMONARY ALVEOLAR HAEMORRHAGE [None]
